FAERS Safety Report 8284094-1 (Version None)
Quarter: 2012Q2

REPORT INFORMATION
  Report Type: 
  Country: None (occurrence: None)
  Receive Date: 20120413
  Receipt Date: 20110929
  Transmission Date: 20120825
  Serious: No
  Sender: FDA-Public Use
  Company Number: US-ASTRAZENECA-2011SE58875

PATIENT
  Sex: Female

DRUGS (4)
  1. NEXIUM [Suspect]
     Indication: GASTROOESOPHAGEAL REFLUX DISEASE
     Route: 048
  2. HEART PILLS [Concomitant]
  3. MULTI-VITAMINS [Concomitant]
  4. VITAMIN B COMPLEX CAP [Concomitant]

REACTIONS (2)
  - DRUG INEFFECTIVE [None]
  - OSTEOPOROSIS [None]
